FAERS Safety Report 26085042 (Version 2)
Quarter: 2025Q4

REPORT INFORMATION
  Report Type: Spontaneous
  Country: US (occurrence: US)
  Receive Date: 20251125
  Receipt Date: 20251201
  Transmission Date: 20260117
  Serious: No
  Sender: BOEHRINGER INGELHEIM
  Company Number: US-BoehringerIngelheim-2025-BI-109358

PATIENT
  Sex: Male

DRUGS (1)
  1. MIRAPEX [Suspect]
     Active Substance: PRAMIPEXOLE DIHYDROCHLORIDE
     Indication: Parkinson^s disease
     Dates: start: 2019

REACTIONS (5)
  - Hallucination [Recovered/Resolved]
  - Sleep disorder [Recovered/Resolved]
  - Urinary incontinence [Recovered/Resolved]
  - Impulse-control disorder [Unknown]
  - Gambling [Unknown]
